FAERS Safety Report 9553329 (Version 2)
Quarter: 2013Q4

REPORT INFORMATION
  Report Type: Report from Study
  Country: US (occurrence: US)
  Receive Date: 20130925
  Receipt Date: 20131002
  Transmission Date: 20140711
  Serious: Yes (Other)
  Sender: FDA-Public Use
  Company Number: US-SANOFI-AVENTIS-2013SA093201

PATIENT
  Age: 43 Year
  Sex: Female
  Weight: 68.94 kg

DRUGS (13)
  1. AUBAGIO [Suspect]
     Indication: MULTIPLE SCLEROSIS
     Route: 048
     Dates: start: 20130501, end: 20130918
  2. FLEXERIL [Concomitant]
     Indication: MUSCLE SPASMS
     Dates: start: 2005
  3. BACLOFEN [Concomitant]
     Indication: TREMOR
     Dates: start: 2008
  4. BACLOFEN [Concomitant]
     Indication: MUSCLE SPASMS
     Dates: start: 2008
  5. MOBIC [Concomitant]
     Indication: RHEUMATOID ARTHRITIS
     Dates: start: 2010
  6. FOCALIN [Concomitant]
     Indication: FATIGUE
     Dates: start: 201307
  7. AMBIEN [Concomitant]
     Indication: SLEEP DISORDER
     Dates: start: 201306
  8. LEXAPRO [Concomitant]
     Dates: start: 2006
  9. MULTIVITAMINS [Concomitant]
  10. STOOL SOFTENER [Concomitant]
  11. CALCIUM [Concomitant]
  12. IRON [Concomitant]
  13. ERGOCALCIFEROL [Concomitant]

REACTIONS (10)
  - Multiple sclerosis relapse [Not Recovered/Not Resolved]
  - Paraesthesia [Not Recovered/Not Resolved]
  - Optic neuritis [Not Recovered/Not Resolved]
  - Visual impairment [Not Recovered/Not Resolved]
  - Eye pain [Not Recovered/Not Resolved]
  - Headache [Not Recovered/Not Resolved]
  - Feeling abnormal [Not Recovered/Not Resolved]
  - Panic attack [Not Recovered/Not Resolved]
  - Chest discomfort [Not Recovered/Not Resolved]
  - Arthropathy [Not Recovered/Not Resolved]
